FAERS Safety Report 21513392 (Version 3)
Quarter: 2023Q2

REPORT INFORMATION
  Report Type: Report from Study
  Country: BR (occurrence: BR)
  Receive Date: 20221027
  Receipt Date: 20230616
  Transmission Date: 20230722
  Serious: Yes (Other)
  Sender: FDA-Public Use
  Company Number: BR-NOVARTISPH-NVSC2022BR239381

PATIENT
  Sex: Female

DRUGS (2)
  1. KISQALI [Suspect]
     Active Substance: RIBOCICLIB
     Indication: Breast cancer
     Dosage: 3 DOSAGE FORM
     Route: 065
     Dates: start: 20220902, end: 20221020
  2. LETROZOLE [Suspect]
     Active Substance: LETROZOLE
     Indication: Product used for unknown indication
     Dosage: UNK
     Route: 065

REACTIONS (9)
  - Breast cancer [Unknown]
  - Malignant neoplasm progression [Unknown]
  - Decreased immune responsiveness [Recovered/Resolved]
  - Adverse drug reaction [Unknown]
  - Anxiety [Unknown]
  - Speech disorder [Unknown]
  - Decreased immune responsiveness [Recovered/Resolved]
  - Headache [Unknown]
  - Nausea [Unknown]
